FAERS Safety Report 11201196 (Version 2)
Quarter: 2015Q2

REPORT INFORMATION
  Report Type: Spontaneous
  Country: GB (occurrence: GB)
  Receive Date: 20150619
  Receipt Date: 20150622
  Transmission Date: 20150821
  Serious: Yes (Other)
  Sender: FDA-Public Use
  Company Number: GB-AMGEN-GBRSP2015058727

PATIENT
  Age: 61 Year
  Sex: Female

DRUGS (1)
  1. ENBREL [Suspect]
     Active Substance: ETANERCEPT
     Indication: PRODUCT USED FOR UNKNOWN INDICATION
     Dosage: UNK
     Route: 065

REACTIONS (10)
  - Malaise [Unknown]
  - Crying [Unknown]
  - Injection site pruritus [Unknown]
  - Injection site pain [Unknown]
  - Depression [Unknown]
  - Injection site erythema [Unknown]
  - Productive cough [Unknown]
  - Lower respiratory tract infection [Unknown]
  - Lymphadenopathy [Unknown]
  - Injection site mass [Unknown]
